FAERS Safety Report 6685226-9 (Version None)
Quarter: 2010Q2

REPORT INFORMATION
  Report Type: 
  Country: None (occurrence: None)
  Receive Date: 20100416
  Receipt Date: 20100408
  Transmission Date: 20101027
  Serious: Yes (Life-Threatening, Hospitalization)
  Sender: FDA-Public Use
  Company Number: ES-ABBOTT-10P-144-0637448-00

PATIENT
  Age: 88 Year
  Sex: Female

DRUGS (3)
  1. DEPAKENE [Suspect]
     Indication: DRUG USE FOR UNKNOWN INDICATION
     Route: 048
     Dates: start: 20090126
  2. WARFARIN [Interacting]
     Indication: ATRIAL FIBRILLATION
     Dosage: PRN
     Route: 048
     Dates: start: 20070701, end: 20091008
  3. OMEPRAZOLE [Interacting]
     Indication: GASTRITIS PROPHYLAXIS
     Route: 048
     Dates: start: 20050101

REACTIONS (3)
  - DRUG INTERACTION [None]
  - FALL [None]
  - SUBCUTANEOUS HAEMATOMA [None]
